FAERS Safety Report 9799779 (Version 3)
Quarter: 2015Q3

REPORT INFORMATION
  Report Type: Spontaneous
  Country: US (occurrence: US)
  Receive Date: 20140106
  Receipt Date: 20150806
  Transmission Date: 20151125
  Serious: No
  Sender: FDA-Public Use
  Company Number: US-GILEAD-2010-0031524

PATIENT
  Age: 73 Year
  Sex: Female
  Weight: 80.29 kg

DRUGS (19)
  1. ADVAIR HFA [Concomitant]
     Active Substance: FLUTICASONE PROPIONATE\SALMETEROL XINAFOATE
  2. CLARITIN [Concomitant]
     Active Substance: LORATADINE
  3. KLOR-CON M10 [Concomitant]
     Active Substance: POTASSIUM CHLORIDE
  4. NEXIUM [Concomitant]
     Active Substance: ESOMEPRAZOLE MAGNESIUM
  5. BACLOFEN. [Concomitant]
     Active Substance: BACLOFEN
  6. ALL DAY CALCIUM ER [Concomitant]
  7. BUMETANIDE. [Concomitant]
     Active Substance: BUMETANIDE
  8. LYRICA [Concomitant]
     Active Substance: PREGABALIN
  9. VENLAFAXINE [Concomitant]
     Active Substance: VENLAFAXINE HYDROCHLORIDE
  10. IRON [Concomitant]
     Active Substance: IRON
  11. LETAIRIS [Suspect]
     Active Substance: AMBRISENTAN
     Indication: PULMONARY ARTERIAL HYPERTENSION
     Route: 048
     Dates: start: 20100811
  12. ASPIRIN. [Concomitant]
     Active Substance: ASPIRIN
  13. VITAMIN A [Concomitant]
     Active Substance: VITAMIN A
  14. DILTIAZEM [Concomitant]
     Active Substance: DILTIAZEM
  15. PYRIDOSTIGMINE BR [Concomitant]
  16. VITAMIN D [Concomitant]
     Active Substance: CHOLECALCIFEROL
  17. VITAMIN B12 [Concomitant]
     Active Substance: CYANOCOBALAMIN
  18. SPIRIVA [Concomitant]
     Active Substance: TIOTROPIUM BROMIDE MONOHYDRATE
  19. PROAIR HFA [Concomitant]
     Active Substance: ALBUTEROL SULFATE

REACTIONS (3)
  - Oedema [Unknown]
  - Peripheral swelling [Unknown]
  - Weight increased [Unknown]
